FAERS Safety Report 21513036 (Version 2)
Quarter: 2022Q4

REPORT INFORMATION
  Report Type: Spontaneous
  Country: US (occurrence: US)
  Receive Date: 20221027
  Receipt Date: 20221121
  Transmission Date: 20230113
  Serious: No
  Sender: FDA-Public Use
  Company Number: US-PFIZER INC-PV202200080431

PATIENT
  Sex: Female

DRUGS (3)
  1. SIMVASTATIN [Suspect]
     Active Substance: SIMVASTATIN
     Dosage: UNK
     Route: 048
  2. TOVIAZ [Suspect]
     Active Substance: FESOTERODINE FUMARATE
     Indication: Micturition urgency
     Dosage: 4 MILLIGRAM, 1 TABLET BY MOUTH ONCE DAILY.
     Route: 048
     Dates: start: 20181130, end: 20221024
  3. TOVIAZ [Suspect]
     Active Substance: FESOTERODINE FUMARATE
     Dosage: 8 MILLIGRAM
     Route: 048
     Dates: start: 20221024

REACTIONS (1)
  - Myalgia [Unknown]
